FAERS Safety Report 5133281-X (Version None)
Quarter: 2006Q4

REPORT INFORMATION
  Report Type: 
  Country: None (occurrence: None)
  Receive Date: 20060831
  Receipt Date: 20060623
  Transmission Date: 20070319
  Serious: No
  Sender: FDA-Public Use
  Company Number: 2006-BP-07280BP

PATIENT

DRUGS (1)
  1. SPIRIVA [Suspect]
     Dosage: (18 MCG),IH

REACTIONS (1)
  - RESPIRATORY TRACT IRRITATION [None]
